FAERS Safety Report 9079559 (Version 1)
Quarter: 2013Q1

REPORT INFORMATION
  Report Type: Report from Study
  Country: US (occurrence: US)
  Receive Date: 20130130
  Receipt Date: 20130130
  Transmission Date: 20140127
  Serious: No
  Sender: FDA-Public Use
  Company Number: US-ABBOTT-12P-163-0953123-00

PATIENT
  Age: 59 None
  Sex: Male

DRUGS (9)
  1. HUMIRA 40 MG/0.8 ML PEN [Suspect]
     Indication: CROHN^S DISEASE
     Dates: start: 201205
  2. PENTASA [Concomitant]
     Indication: CROHN^S DISEASE
     Route: 048
  3. LISINOPRIL [Concomitant]
     Indication: HYPERTENSION
     Route: 048
  4. SERTRALINE [Concomitant]
     Indication: DEPRESSION
     Route: 048
  5. METFORMIN [Concomitant]
     Indication: DIABETES MELLITUS
     Route: 048
  6. ADVAIR [Concomitant]
     Indication: ASTHMA
  7. ZANTAC [Concomitant]
     Indication: DYSPEPSIA
     Route: 048
  8. ACETAMINOPHEN [Concomitant]
     Indication: ABDOMINAL PAIN UPPER
     Route: 048
  9. LORTAB [Concomitant]
     Indication: PAIN
     Route: 048

REACTIONS (3)
  - Drug dose omission [Recovered/Resolved]
  - Injection site pain [Recovered/Resolved]
  - Device malfunction [Recovered/Resolved]
